FAERS Safety Report 24750769 (Version 1)
Quarter: 2024Q4

REPORT INFORMATION
  Report Type: Spontaneous
  Country: IN (occurrence: None)
  Receive Date: 20241218
  Receipt Date: 20241218
  Transmission Date: 20250115
  Serious: Yes (Other)
  Sender: ENCUBE ETHICALS
  Company Number: IN-Encube-001455

PATIENT
  Age: 42 Year
  Sex: Male

DRUGS (2)
  1. TRIAMCINOLONE ACETONIDE [Suspect]
     Active Substance: TRIAMCINOLONE ACETONIDE
     Indication: Visual impairment
     Dosage: PERI-OCULAR POSTERIOR SUBTENON INJECTION
  2. TRIAMCINOLONE ACETONIDE [Suspect]
     Active Substance: TRIAMCINOLONE ACETONIDE
     Indication: Ocular hyperaemia
     Dosage: POSTERIOR SUBTENON INJECTION

REACTIONS (4)
  - Blindness [Unknown]
  - Vitreous floaters [Unknown]
  - Open globe injury [Unknown]
  - Off label use [Unknown]
